FAERS Safety Report 17809265 (Version 2)
Quarter: 2020Q2

REPORT INFORMATION
  Report Type: Spontaneous
  Country: GB (occurrence: GB)
  Receive Date: 20200520
  Receipt Date: 20200522
  Transmission Date: 20200714
  Serious: Yes (Life-Threatening, Hospitalization, Other)
  Sender: FDA-Public Use
  Company Number: GB-MYLANLABS-2020M1041380

PATIENT
  Age: 35 Year
  Sex: Female

DRUGS (2)
  1. CLOZARIL [Suspect]
     Active Substance: CLOZAPINE
     Indication: SCHIZOPHRENIA
     Dosage: 650 MILLIGRAM, QD
     Route: 048
     Dates: start: 20100715
  2. CLOZARIL [Suspect]
     Active Substance: CLOZAPINE
     Dosage: 600 MILLIGRAM
     Dates: end: 20200518

REACTIONS (3)
  - Pericarditis [Unknown]
  - Anaemia [Unknown]
  - Pleural effusion [Unknown]

NARRATIVE: CASE EVENT DATE: 20200423
